FAERS Safety Report 4341334-9 (Version None)
Quarter: 2004Q1

REPORT INFORMATION
  Report Type: 
  Country: None (occurrence: None)
  Receive Date: 20040329
  Receipt Date: 20040220
  Transmission Date: 20041129
  Serious: No
  Sender: FDA-Public Use
  Company Number: 04P-163-0250939-00

PATIENT
  Age: 71 Year
  Sex: Female
  Weight: 74.8435 kg

DRUGS (5)
  1. HUMIRA [Suspect]
     Indication: RHEUMATOID ARTHRITIS
     Dosage: 40 MG, 1 IN 2 WK, SUBCUTANEOUS
     Route: 058
     Dates: start: 20030101
  2. CARISOPRODOL [Concomitant]
  3. PREDNISONE [Concomitant]
  4. LEFLUNOMIDE [Concomitant]
  5. ACETAMINOPHEN W/ CODEINE [Concomitant]

REACTIONS (1)
  - DRUG INEFFECTIVE [None]
